FAERS Safety Report 18516258 (Version 1)
Quarter: 2020Q4

REPORT INFORMATION
  Report Type: Report from Study
  Country: US (occurrence: US)
  Receive Date: 20201118
  Receipt Date: 20201118
  Transmission Date: 20210114
  Serious: Yes (Hospitalization, Other)
  Sender: FDA-Public Use
  Company Number: US-AUROBINDO-AUR-APL-2020-056222

PATIENT
  Age: 39 Year
  Sex: Female
  Weight: 102 kg

DRUGS (11)
  1. LABETALOL [Suspect]
     Active Substance: LABETALOL\LABETALOL HYDROCHLORIDE
     Indication: HYPERTENSION
     Dosage: UNK (37 WEEKS PREGNANT -DELIVERY)
     Route: 065
  2. TRAZODONE [Suspect]
     Active Substance: TRAZODONE HYDROCHLORIDE
     Indication: SLEEP DISORDER
     Dosage: UNK (BEFORE LMP - 8 WEEKS PREGNANCY)
     Route: 065
  3. NEURONTIN [Suspect]
     Active Substance: GABAPENTIN
     Indication: PAIN
     Dosage: UNK (BEFORE LMP - DELIVERY)
     Route: 065
  4. ZOLOFT [Suspect]
     Active Substance: SERTRALINE HYDROCHLORIDE
     Indication: DEPRESSION
     Dosage: UNK (28 WEEKS PREGNANT)
     Route: 065
  5. URSODIOL. [Suspect]
     Active Substance: URSODIOL
     Indication: CHOLESTASIS
     Dosage: UNK (34 WEEKS PREGNANT- DELIVER)
     Route: 065
  6. VISTARIL [Suspect]
     Active Substance: HYDROXYZINE PAMOATE
     Indication: CHOLESTASIS
     Dosage: UNK (34 WEEKS PREGNANT- DELIVERY)
     Route: 065
  7. MELOXICAM. [Suspect]
     Active Substance: MELOXICAM
     Indication: MIGRAINE
     Dosage: UNK (BEFORE LMP- DELIVERY)
     Route: 065
  8. CYMBALTA [Suspect]
     Active Substance: DULOXETINE HYDROCHLORIDE
     Indication: DEPRESSION
     Dosage: UNK (BEFORE LMP- 8 WEEKS OF PREGNANCY)
     Route: 065
  9. BUPROPION. [Suspect]
     Active Substance: BUPROPION
     Indication: DEPRESSION
     Dosage: UNK (BEFORE LMP)
     Route: 065
  10. GEODON [Suspect]
     Active Substance: ZIPRASIDONE HYDROCHLORIDE\ZIPRASIDONE MESYLATE
     Indication: BIPOLAR DISORDER
     Dosage: UNK (BEFORE LMP- 8 WEEKS PREGNANT)
     Route: 065
  11. BUPRENORPHINE. [Suspect]
     Active Substance: BUPRENORPHINE
     Indication: PAIN
     Dosage: UNK (BEFORE LMP - DELIVERY)
     Route: 065

REACTIONS (2)
  - Cholestasis of pregnancy [Unknown]
  - Maternal exposure during pregnancy [Unknown]

NARRATIVE: CASE EVENT DATE: 20200531
